FAERS Safety Report 6730256-1 (Version None)
Quarter: 2010Q2

REPORT INFORMATION
  Report Type: 
  Country: None (occurrence: None)
  Receive Date: 20100518
  Receipt Date: 20100505
  Transmission Date: 20101027
  Serious: Yes (Disabling)
  Sender: FDA-Public Use
  Company Number: NO-ROCHE-686007

PATIENT
  Sex: Female

DRUGS (10)
  1. HERCEPTIN [Suspect]
     Indication: PALLIATIVE CARE
     Dosage: IN COMBINATION WITH TAXOL.
     Route: 065
     Dates: start: 20081101
  2. HERCEPTIN [Suspect]
     Dosage: FROM APRIL 2008, GIVEN AS MONOTHERAPY.
     Route: 065
     Dates: start: 20090401
  3. FLUOROURACIL [Concomitant]
     Dosage: STOPPED AFTER 5 COURSES.
     Dates: end: 20070301
  4. FLUOROURACIL [Concomitant]
     Dosage: 2 COURSES OF FEC 100.
     Dates: start: 20080801
  5. EPIRUBICIN [Concomitant]
     Dosage: STOPPED AFTER 5 COURSES.
     Dates: end: 20070301
  6. EPIRUBICIN [Concomitant]
     Dosage: 2 COURSES OF FEC 100.
     Dates: start: 20080801
  7. CYCLOPHOSPHAMIDE [Concomitant]
     Dosage: STOPPED AFTER 5 COURSES.
     Dates: end: 20070301
  8. CYCLOPHOSPHAMIDE [Concomitant]
     Dosage: 2 COURSES OF FEC 100.
     Dates: start: 20080801
  9. TAXOL [Concomitant]
     Dates: start: 20081101
  10. MINIRIN [Concomitant]
     Dosage: DRUG REPORTED: MINIRIN NASAL SPRAY.

REACTIONS (3)
  - DEAFNESS [None]
  - EAR INFECTION [None]
  - METASTASES TO CENTRAL NERVOUS SYSTEM [None]
